FAERS Safety Report 7108317-7 (Version None)
Quarter: 2010Q4

REPORT INFORMATION
  Report Type: 
  Country: None (occurrence: None)
  Receive Date: 20101112
  Receipt Date: 20101102
  Transmission Date: 20110411
  Serious: Yes (Other)
  Sender: FDA-Public Use
  Company Number: 2010SP058192

PATIENT
  Age: 73 Year
  Sex: Male

DRUGS (4)
  1. REMERON [Suspect]
     Indication: DEPRESSION
     Dosage: 15 MG;QD; PO 7.5 MG;QD; PO
     Route: 048
     Dates: start: 20101008, end: 20101009
  2. REMERON [Suspect]
     Indication: DEPRESSION
     Dosage: 15 MG;QD; PO 7.5 MG;QD; PO
     Route: 048
     Dates: start: 20101010, end: 20101011
  3. MYSLEE [Concomitant]
  4. AMOBAN [Concomitant]

REACTIONS (2)
  - AMNESIA [None]
  - SOMNAMBULISM [None]
